FAERS Safety Report 19479942 (Version 1)
Quarter: 2021Q2

REPORT INFORMATION
  Report Type: Spontaneous
  Country: US (occurrence: US)
  Receive Date: 20210630
  Receipt Date: 20210630
  Transmission Date: 20210717
  Serious: Yes (Other)
  Sender: FDA-Public Use
  Company Number: NVSC2021US140474

PATIENT
  Sex: Female

DRUGS (1)
  1. KESIMPTA [Suspect]
     Active Substance: OFATUMUMAB
     Indication: MULTIPLE SCLEROSIS
     Route: 065

REACTIONS (6)
  - Depressed mood [Unknown]
  - Anxiety [Unknown]
  - Drug ineffective [Unknown]
  - Progressive multiple sclerosis [Unknown]
  - Psychiatric symptom [Unknown]
  - Gait disturbance [Unknown]
